FAERS Safety Report 6045183-5 (Version None)
Quarter: 2009Q1

REPORT INFORMATION
  Report Type: 
  Country: None (occurrence: None)
  Receive Date: 20090116
  Receipt Date: 20090116
  Transmission Date: 20090719
  Serious: Yes (Other)
  Sender: FDA-Public Use
  Company Number: None

PATIENT
  Age: 85 Year
  Sex: Female

DRUGS (1)
  1. OXCARBAZEPINE [Suspect]
     Dosage: Q12 PO
     Route: 048
     Dates: start: 20081201, end: 20081201

REACTIONS (3)
  - PRODUCT QUALITY ISSUE [None]
  - RASH [None]
  - URTICARIA [None]
